FAERS Safety Report 23388404 (Version 3)
Quarter: 2024Q3

REPORT INFORMATION
  Report Type: Report from Study
  Country: US (occurrence: US)
  Receive Date: 20240110
  Receipt Date: 20240828
  Transmission Date: 20241017
  Serious: Yes (Other)
  Sender: PFIZER
  Company Number: US-PFIZER INC-PV202400002748

PATIENT
  Age: 61 Year
  Sex: Female

DRUGS (4)
  1. ADCETRIS [Suspect]
     Active Substance: BRENTUXIMAB VEDOTIN
     Indication: Hodgkin^s disease stage III
     Dosage: UNK, CYCLIC
     Dates: start: 20230728, end: 20231201
  2. DACARBAZINE [Suspect]
     Active Substance: DACARBAZINE
     Indication: Hodgkin^s disease stage III
     Dosage: UNK, CYCLIC
     Route: 065
     Dates: start: 20230728, end: 20231201
  3. DOXORUBICIN HYDROCHLORIDE [Suspect]
     Active Substance: DOXORUBICIN HYDROCHLORIDE
     Indication: Hodgkin^s disease stage III
     Dosage: UNK, CYCLIC
     Dates: start: 20230728, end: 20231201
  4. VINBLASTINE SULFATE [Suspect]
     Active Substance: VINBLASTINE SULFATE
     Indication: Hodgkin^s disease stage III
     Dosage: UNK
     Route: 065
     Dates: start: 20230728, end: 20231201

REACTIONS (5)
  - Cardiac failure congestive [Unknown]
  - Cardiotoxicity [Unknown]
  - Cardiac arrest [Unknown]
  - Illness [Unknown]
  - Drug intolerance [Unknown]

NARRATIVE: CASE EVENT DATE: 20240103
